FAERS Safety Report 25939203 (Version 1)
Quarter: 2025Q4

REPORT INFORMATION
  Report Type: Report from Study
  Country: CA (occurrence: CA)
  Receive Date: 20251020
  Receipt Date: 20251020
  Transmission Date: 20260118
  Serious: Yes (Hospitalization)
  Sender: AMGEN
  Company Number: CA-002147023-NVSC2025CA161072

PATIENT
  Sex: Female

DRUGS (1)
  1. AIMOVIG [Suspect]
     Active Substance: ERENUMAB-AOOE
     Indication: Migraine
     Dosage: UNK
     Route: 048
     Dates: start: 20190208

REACTIONS (3)
  - Urinary tract infection [Unknown]
  - Infection [Unknown]
  - Foot fracture [Unknown]
